FAERS Safety Report 11757196 (Version 2)
Quarter: 2015Q4

REPORT INFORMATION
  Report Type: Spontaneous
  Country: DE (occurrence: DE)
  Receive Date: 20151120
  Receipt Date: 20151203
  Transmission Date: 20160304
  Serious: Yes (Hospitalization, Disabling)
  Sender: FDA-Public Use
  Company Number: DE-DRREDDYS-GER/GER/15/0054039

PATIENT
  Age: 74 Year
  Sex: Male
  Weight: 77 kg

DRUGS (2)
  1. EUTHYROX [Concomitant]
     Active Substance: LEVOTHYROXINE SODIUM
     Indication: HYPOTHYROIDISM
     Dates: start: 2000
  2. TERBINAFIN BETA 250 MG TABLETTEN [Suspect]
     Active Substance: TERBINAFINE
     Indication: ONYCHOMYCOSIS
     Route: 048
     Dates: start: 201502, end: 201509

REACTIONS (8)
  - Gait disturbance [Not Recovered/Not Resolved]
  - Syncope [Unknown]
  - Anaemia [Unknown]
  - Polyneuropathy [Not Recovered/Not Resolved]
  - Leukoencephalopathy [Unknown]
  - Vestibular disorder [Not Recovered/Not Resolved]
  - Haematoma [Unknown]
  - Carotid artery stenosis [Unknown]

NARRATIVE: CASE EVENT DATE: 201508
